FAERS Safety Report 9791240 (Version 1)
Quarter: 2014Q1

REPORT INFORMATION
  Report Type: Report from Study
  Country: US (occurrence: US)
  Receive Date: 20140101
  Receipt Date: 20140101
  Transmission Date: 20141002
  Serious: Yes (Other)
  Sender: FDA-Public Use
  Company Number: US-ROCHE-1325688

PATIENT
  Sex: 0

DRUGS (1)
  1. ENFUVIRTIDE [Suspect]
     Indication: HIV INFECTION
     Route: 058

REACTIONS (1)
  - Oedema [Unknown]
